FAERS Safety Report 9431947 (Version 5)
Quarter: 2013Q3

REPORT INFORMATION
  Report Type: Report from Study
  Country: US (occurrence: US)
  Receive Date: 20130731
  Receipt Date: 20130930
  Transmission Date: 20140515
  Serious: Yes (Other)
  Sender: FDA-Public Use
  Company Number: US-ROCHE-1254000

PATIENT
  Sex: Male

DRUGS (10)
  1. LUCENTIS [Suspect]
     Indication: DIABETIC RETINAL OEDEMA
     Dosage: BOTH EYES
     Route: 031
     Dates: start: 20130913, end: 20130913
  2. LUCENTIS [Suspect]
     Indication: DIABETIC RETINOPATHY
  3. HYDROCHLOROTHIAZIDE [Concomitant]
  4. GLIPIZIDE [Concomitant]
  5. METFORMIN HYDROCHLORIDE [Concomitant]
  6. SIMVASTATIN [Concomitant]
  7. ASPIRIN [Concomitant]
     Route: 065
  8. LEVOTHYROXINE SODIUM [Concomitant]
  9. ENALAPRIL MALEATE [Concomitant]
  10. BROMDAY [Concomitant]

REACTIONS (11)
  - Pneumothorax [Unknown]
  - Pneumonia [Unknown]
  - Retinal haemorrhage [Unknown]
  - Blood pressure increased [Unknown]
  - Vision blurred [Recovered/Resolved]
  - Photophobia [Unknown]
  - Vision blurred [Unknown]
  - Retinal aneurysm [Unknown]
  - Retinal disorder [Unknown]
  - Retinal haemorrhage [Unknown]
  - Diabetic retinal oedema [Unknown]
